FAERS Safety Report 13472301 (Version 1)
Quarter: 2017Q2

REPORT INFORMATION
  Report Type: Report from Study
  Country: DE (occurrence: DE)
  Receive Date: 20170424
  Receipt Date: 20170424
  Transmission Date: 20170830
  Serious: Yes (Hospitalization)
  Sender: FDA-Public Use
  Company Number: DE-SA-2017SA068816

PATIENT
  Age: 66 Year
  Sex: Male
  Weight: 58 kg

DRUGS (7)
  1. PREDNISONE. [Concomitant]
     Active Substance: PREDNISONE
     Dosage: STRENGTH: 5 MG
     Route: 048
  2. TAVANIC [Concomitant]
     Active Substance: LEVOFLOXACIN
     Dosage: STRENGTH: 500 MG
     Route: 048
  3. CALCIUM D3 [Concomitant]
     Active Substance: CALCIUM\CHOLECALCIFEROL
     Dosage: STRENGTH: 600 MG
     Route: 048
  4. MCP [Concomitant]
     Active Substance: METOCLOPRAMIDE HYDROCHLORIDE
     Dosage: STRENGTH: 10 MG
     Route: 048
  5. OMEPRAZOLE. [Concomitant]
     Active Substance: OMEPRAZOLE
     Dosage: STRENGTH: 20 MG
     Route: 048
  6. JEVTANA [Suspect]
     Active Substance: CABAZITAXEL
     Dosage: ROUTE. IV INFUSION
     Route: 042
     Dates: start: 20170403, end: 20170403
  7. L-THYROXIN [Concomitant]
     Active Substance: LEVOTHYROXINE SODIUM
     Dosage: STRENGTH: 75 MG
     Route: 048

REACTIONS (1)
  - General physical health deterioration [Recovering/Resolving]

NARRATIVE: CASE EVENT DATE: 20170412
